FAERS Safety Report 13043588 (Version 2)
Quarter: 2017Q4

REPORT INFORMATION
  Report Type: Spontaneous
  Country: US (occurrence: US)
  Receive Date: 20161220
  Receipt Date: 20171220
  Transmission Date: 20180320
  Serious: No
  Sender: FDA-Public Use
  Company Number: US-TEVA-704348USA

PATIENT
  Sex: Female

DRUGS (1)
  1. METRONIDAZOLE. [Suspect]
     Active Substance: METRONIDAZOLE

REACTIONS (3)
  - Insomnia [Recovered/Resolved]
  - Impaired work ability [Recovered/Resolved]
  - Chest pain [Recovered/Resolved]
